FAERS Safety Report 4714663-4 (Version None)
Quarter: 2005Q3

REPORT INFORMATION
  Report Type: 
  Country: None (occurrence: None)
  Receive Date: 20050712
  Receipt Date: 20050623
  Transmission Date: 20060218
  Serious: Yes (Other)
  Sender: FDA-Public Use
  Company Number: FR_050606709

PATIENT
  Age: 49 Year
  Sex: Female
  Weight: 67 kg

DRUGS (7)
  1. HUMATROPE [Suspect]
     Indication: GROWTH HORMONE DEFICIENCY
     Dosage: 0.2 MG DAY
     Dates: start: 20041130, end: 20050120
  2. TENORMIN [Concomitant]
  3. HYDROCORTISONE(HYDROCORTISONE / 00028601/) [Concomitant]
  4. MINIRIN (DESMOPRESSIN ACETATE) [Concomitant]
  5. LEVOTHYROXINE SODIUM [Concomitant]
  6. PAROXETINE HYDROCHLORIDE [Concomitant]
  7. IMOVANE (ZOPICLONE) [Concomitant]

REACTIONS (4)
  - CENTRAL NERVOUS SYSTEM LESION [None]
  - EYE PAIN [None]
  - HEADACHE [None]
  - PITUITARY HAEMORRHAGE [None]
